FAERS Safety Report 6745076-1 (Version None)
Quarter: 2010Q2

REPORT INFORMATION
  Report Type: 
  Country: None (occurrence: None)
  Receive Date: 20100527
  Receipt Date: 20100521
  Transmission Date: 20101027
  Serious: Yes (Other)
  Sender: FDA-Public Use
  Company Number: CH-MERCK-1005CHE00015

PATIENT
  Age: 16 Year
  Sex: Female

DRUGS (1)
  1. MAXALT [Suspect]
     Indication: MIGRAINE
     Route: 048
     Dates: start: 20100307, end: 20100307

REACTIONS (3)
  - ERYTHEMA [None]
  - THROAT TIGHTNESS [None]
  - TYPE II HYPERSENSITIVITY [None]
